FAERS Safety Report 8764647 (Version 1)
Quarter: 2012Q4

REPORT INFORMATION
  Report Type: 
  Country: DK (occurrence: NO)
  Receive Date: 20120831
  Receipt Date: 20120831
  Transmission Date: 20130627
  Serious: Yes (Death, Other)
  Sender: FDA-Public Use
  Company Number: NO-FRI-1000038253

PATIENT
  Age: 64 Year
  Sex: Female

DRUGS (7)
  1. CITALOPRAM [Suspect]
  2. AMITRIPTYLINE [Suspect]
  3. PARACETAMOL/ CODEINE [Suspect]
  4. DIAZEPAM [Suspect]
  5. ZOLPIDEM [Suspect]
  6. NITRAZEPAM [Suspect]
  7. MIANSERIN [Suspect]

REACTIONS (2)
  - Toxicity to various agents [Fatal]
  - Overdose [Fatal]
